FAERS Safety Report 11402791 (Version 1)
Quarter: 2015Q3

REPORT INFORMATION
  Report Type: Spontaneous
  Country: US (occurrence: US)
  Receive Date: 20150821
  Receipt Date: 20150821
  Transmission Date: 20151125
  Serious: No
  Sender: FDA-Public Use
  Company Number: US-ROCHE-1289547

PATIENT
  Sex: Male
  Weight: 90.8 kg

DRUGS (3)
  1. INCIVEK [Suspect]
     Active Substance: TELAPREVIR
     Indication: CHRONIC HEPATITIS C
     Route: 065
     Dates: start: 20130917
  2. PEGASYS [Suspect]
     Active Substance: PEGINTERFERON ALFA-2A
     Indication: CHRONIC HEPATITIS C
     Route: 058
     Dates: start: 20130917
  3. RIBAVIRIN. [Suspect]
     Active Substance: RIBAVIRIN
     Indication: CHRONIC HEPATITIS C
     Dosage: 600/600 DIVIDED DOSE
     Route: 065
     Dates: start: 20130917

REACTIONS (12)
  - Irritability [Unknown]
  - Exercise tolerance decreased [Unknown]
  - Rash pruritic [Unknown]
  - Weight increased [Unknown]
  - Headache [Unknown]
  - Irregular sleep phase [Unknown]
  - Asthenia [Unknown]
  - Haemoglobin decreased [Unknown]
  - Dizziness postural [Unknown]
  - Influenza like illness [Unknown]
  - Dyspnoea [Unknown]
  - Dyspepsia [Unknown]
